FAERS Safety Report 8999661 (Version 1)
Quarter: 2013Q1

REPORT INFORMATION
  Report Type: Spontaneous
  Country: US (occurrence: US)
  Receive Date: 20130103
  Receipt Date: 20130103
  Transmission Date: 20140127
  Serious: Yes (Hospitalization, Other)
  Sender: FDA-Public Use
  Company Number: US-ELI_LILLY_AND_COMPANY-US201212008279

PATIENT
  Sex: Female

DRUGS (2)
  1. HUMALOG LISPRO [Suspect]
     Indication: DIABETES MELLITUS
     Dosage: UNK UNK, UNKNOWN
     Dates: end: 201212
  2. LANTUS [Concomitant]
     Dosage: UNK, UNKNOWN

REACTIONS (2)
  - Cerebrovascular accident [Recovered/Resolved with Sequelae]
  - Amnesia [Not Recovered/Not Resolved]
